FAERS Safety Report 7984971-2 (Version None)
Quarter: 2011Q4

REPORT INFORMATION
  Report Type: 
  Country: None (occurrence: None)
  Receive Date: 20111214
  Receipt Date: 20101202
  Transmission Date: 20120403
  Serious: Yes (Death, Other)
  Sender: FDA-Public Use
  Company Number: KADN20110217

PATIENT
  Age: 56 Year
  Sex: Female

DRUGS (19)
  1. DEXAMETHASONE ACETATE [Suspect]
     Indication: MULTIPLE MYELOMA
     Dosage: 40 MG DAILY, ORAL; 40MG DAILY, ORAL; 40MG, 4 TIMES/8DAYS, ORAL; 40 MG, 4 TIMES/8 DAYS, ORAL
     Route: 048
     Dates: start: 20101105, end: 20101124
  2. DEXAMETHASONE ACETATE [Suspect]
     Indication: MULTIPLE MYELOMA
     Dosage: 40 MG DAILY, ORAL; 40MG DAILY, ORAL; 40MG, 4 TIMES/8DAYS, ORAL; 40 MG, 4 TIMES/8 DAYS, ORAL
     Route: 048
     Dates: start: 20101015, end: 20101018
  3. DEXAMETHASONE ACETATE [Suspect]
     Indication: MULTIPLE MYELOMA
     Dosage: 40 MG DAILY, ORAL; 40MG DAILY, ORAL; 40MG, 4 TIMES/8DAYS, ORAL; 40 MG, 4 TIMES/8 DAYS, ORAL
     Route: 048
     Dates: start: 20101023, end: 20101026
  4. DEXAMETHASONE ACETATE [Suspect]
     Indication: MULTIPLE MYELOMA
     Dosage: 40 MG DAILY, ORAL; 40MG DAILY, ORAL; 40MG, 4 TIMES/8DAYS, ORAL; 40 MG, 4 TIMES/8 DAYS, ORAL
     Route: 048
     Dates: start: 20101203, end: 20101221
  5. VOLTAREN [Concomitant]
  6. ATELEC [Concomitant]
  7. MAGNESIUM SULFATE [Concomitant]
  8. MUCOSTA [Concomitant]
  9. LANSOPRAZOLE [Concomitant]
  10. TECIPUL [Concomitant]
  11. INTERAN [Concomitant]
  12. MORPHINE SULFATE [Suspect]
     Indication: MULTIPLE MYELOMA
     Dosage: 20 MG PER DAY, ORAL
     Route: 048
     Dates: start: 20100915, end: 20101027
  13. REVLIMID [Suspect]
     Indication: MULTIPLE MYELOMA
     Dosage: 15 MG EVERY OTHER DAY, ORAL; 15 MG DAILY, ORAL; 25 MG DAILY, ORAL
     Route: 048
     Dates: start: 20100107, end: 20101021
  14. REVLIMID [Suspect]
     Indication: MULTIPLE MYELOMA
     Dosage: 15 MG EVERY OTHER DAY, ORAL; 15 MG DAILY, ORAL; 25 MG DAILY, ORAL
     Route: 048
     Dates: start: 20101104, end: 20101124
  15. REVLIMID [Suspect]
     Indication: MULTIPLE MYELOMA
     Dosage: 15 MG EVERY OTHER DAY, ORAL; 15 MG DAILY, ORAL; 25 MG DAILY, ORAL
     Route: 048
     Dates: start: 20101202, end: 20101221
  16. ABILIFY [Concomitant]
  17. CANDESARTAN CILEXETIL [Concomitant]
  18. ACETAMINOPHEN [Concomitant]
  19. BORTEZOMIB [Concomitant]

REACTIONS (11)
  - SEPSIS [None]
  - NO THERAPEUTIC RESPONSE [None]
  - DECREASED APPETITE [None]
  - PLATELET COUNT DECREASED [None]
  - BACILLUS TEST POSITIVE [None]
  - PYREXIA [None]
  - INFECTION IN AN IMMUNOCOMPROMISED HOST [None]
  - NEUTROPENIA [None]
  - WHITE BLOOD CELL COUNT DECREASED [None]
  - PNEUMONIA [None]
  - HAEMOGLOBIN DECREASED [None]
